FAERS Safety Report 4342518-6 (Version None)
Quarter: 2004Q2

REPORT INFORMATION
  Report Type: 
  Country: None (occurrence: None)
  Receive Date: 20040414
  Receipt Date: 20040330
  Transmission Date: 20050107
  Serious: Yes (Hospitalization)
  Sender: FDA-Public Use
  Company Number: 601193

PATIENT
  Age: 57 Year
  Sex: Female
  Weight: 82.5547 kg

DRUGS (12)
  1. POLYGAM S/D [Suspect]
     Indication: SCLERODERMA
     Dosage: 35 GM; Q4W; INTRAVENOUS
     Route: 042
     Dates: start: 20040210, end: 20040210
  2. POTASSIUM [Concomitant]
  3. COZAAR [Concomitant]
  4. NEXIUM [Concomitant]
  5. ALDACTONE [Concomitant]
  6. LASIX [Concomitant]
  7. PREDNISONE [Concomitant]
  8. FLONASE [Concomitant]
  9. NEURONTIN [Concomitant]
  10. ASPIRIN [Concomitant]
  11. PREMARIN [Concomitant]
  12. OXYCODONE [Concomitant]

REACTIONS (2)
  - ACUTE MYOCARDIAL INFARCTION [None]
  - ARTERIOSPASM CORONARY [None]
